FAERS Safety Report 4759575-5 (Version None)
Quarter: 2005Q3

REPORT INFORMATION
  Report Type: 
  Country: None (occurrence: None)
  Receive Date: 20050901
  Receipt Date: 20050218
  Transmission Date: 20060218
  Serious: Yes (Hospitalization)
  Sender: FDA-Public Use
  Company Number: US-MERCK-0502USA02695

PATIENT
  Age: 62 Year
  Sex: Female
  Weight: 70 kg

DRUGS (6)
  1. VIOXX [Suspect]
     Route: 048
     Dates: start: 20000426, end: 20010719
  2. VIOXX [Suspect]
     Route: 048
     Dates: start: 20010719, end: 20040901
  3. VIOXX [Suspect]
     Route: 048
     Dates: start: 19990101, end: 20020101
  4. ULTRAM [Concomitant]
     Route: 048
  5. ZOLOFT [Concomitant]
     Route: 065
     Dates: start: 20000426
  6. ESTRADERM [Concomitant]
     Indication: MENOPAUSE
     Route: 065
     Dates: start: 19950620, end: 20050123

REACTIONS (32)
  - ABDOMINAL DISTENSION [None]
  - ABDOMINAL PAIN UPPER [None]
  - ANGINA UNSTABLE [None]
  - ANHEDONIA [None]
  - ASTHENIA [None]
  - BLOOD CHOLESTEROL INCREASED [None]
  - BLOOD CREATININE INCREASED [None]
  - BLOOD GLUCOSE INCREASED [None]
  - BLOOD UREA INCREASED [None]
  - BURSITIS [None]
  - CELLULITIS [None]
  - CHEST PAIN [None]
  - CONSTIPATION [None]
  - CORONARY ARTERY DISEASE [None]
  - DEHYDRATION [None]
  - DISEASE RECURRENCE [None]
  - DIZZINESS [None]
  - DRUG INEFFECTIVE [None]
  - DYSPNOEA [None]
  - EMOTIONAL DISTRESS [None]
  - ERYTHEMA [None]
  - FATIGUE [None]
  - GASTRITIS [None]
  - HAEMATOCHEZIA [None]
  - HYPERTENSION [None]
  - HYPOTENSION [None]
  - INCISION SITE COMPLICATION [None]
  - JOINT EFFUSION [None]
  - MENISCUS LESION [None]
  - MUSCULOSKELETAL PAIN [None]
  - PAIN [None]
  - PROCEDURAL HYPOTENSION [None]
